FAERS Safety Report 9114933 (Version 1)
Quarter: 2013Q1

REPORT INFORMATION
  Report Type: Spontaneous
  Country: US (occurrence: None)
  Receive Date: 20130220
  Receipt Date: 20130220
  Transmission Date: 20140127
  Serious: Yes (Other)
  Sender: FDA-Public Use
  Company Number: None

PATIENT
  Age: 67 Year
  Sex: Female

DRUGS (5)
  1. AUBAGIO [Suspect]
     Dosage: 14MG  QD  PO?FROM  01/22/2013  TO  PRESENT
     Route: 048
     Dates: start: 20130122
  2. LISINOPRIL [Concomitant]
  3. PROPRANOLOL [Concomitant]
  4. TRAZADONE [Concomitant]
  5. PRISTIQ [Concomitant]

REACTIONS (2)
  - Insomnia [None]
  - Blood pressure increased [None]
